FAERS Safety Report 8117661-6 (Version None)
Quarter: 2012Q1

REPORT INFORMATION
  Report Type: 
  Country: None (occurrence: None)
  Receive Date: 20120203
  Receipt Date: 20120203
  Transmission Date: 20120608
  Serious: Yes (Other)
  Sender: FDA-Public Use
  Company Number: None

PATIENT
  Sex: Female

DRUGS (1)
  1. CAMPRAL [Suspect]
     Indication: ALCOHOL WITHDRAWAL SYNDROME
     Dosage: 333MG TID PO
     Route: 048
     Dates: start: 20111209

REACTIONS (2)
  - RASH PRURITIC [None]
  - RESTLESSNESS [None]
